FAERS Safety Report 16906370 (Version 1)
Quarter: 2019Q4

REPORT INFORMATION
  Report Type: Spontaneous
  Country: FR (occurrence: FR)
  Receive Date: 20191011
  Receipt Date: 20191011
  Transmission Date: 20200122
  Serious: Yes (Hospitalization)
  Sender: FDA-Public Use
  Company Number: FR-ROCHE-2433369

PATIENT
  Age: 60 Year
  Sex: Male

DRUGS (1)
  1. COTELLIC [Suspect]
     Active Substance: COBIMETINIB
     Indication: ERDHEIM-CHESTER DISEASE
     Route: 048
     Dates: start: 201902, end: 201906

REACTIONS (1)
  - T-cell lymphoma [Unknown]

NARRATIVE: CASE EVENT DATE: 20190725
